FAERS Safety Report 10577808 (Version 1)
Quarter: 2014Q4

REPORT INFORMATION
  Report Type: Spontaneous
  Country: US (occurrence: US)
  Receive Date: 20141111
  Receipt Date: 20141111
  Transmission Date: 20150529
  Serious: No
  Sender: FDA-Public Use
  Company Number: US-MALLINCKRODT-T201402387

PATIENT
  Sex: Male

DRUGS (6)
  1. PENNSAID [Suspect]
     Active Substance: DICLOFENAC SODIUM
     Indication: PAIN IN EXTREMITY
     Dosage: UNK, BID
     Route: 061
     Dates: end: 20140522
  2. PENNSAID [Suspect]
     Active Substance: DICLOFENAC SODIUM
     Indication: ARTHRALGIA
  3. PENNSAID [Concomitant]
     Active Substance: DICLOFENAC SODIUM
     Dosage: 1.5%
  4. NEURONTIN [Concomitant]
     Active Substance: GABAPENTIN
     Route: 048
  5. TRAMADOL [Concomitant]
     Active Substance: TRAMADOL
     Route: 048
  6. MOBIC [Concomitant]
     Active Substance: MELOXICAM
     Route: 048

REACTIONS (2)
  - Application site rash [Not Recovered/Not Resolved]
  - Product use issue [Unknown]

NARRATIVE: CASE EVENT DATE: 20140522
